FAERS Safety Report 11255992 (Version 4)
Quarter: 2016Q2

REPORT INFORMATION
  Report Type: Report from Study
  Country: US (occurrence: US)
  Receive Date: 20150709
  Receipt Date: 20160606
  Transmission Date: 20160815
  Serious: Yes (Other)
  Sender: FDA-Public Use
  Company Number: PHHY2015US027597

PATIENT
  Age: 53 Year
  Sex: Male

DRUGS (2)
  1. GILENYA [Suspect]
     Active Substance: FINGOLIMOD HYDROCHLORIDE
     Indication: MULTIPLE SCLEROSIS
     Route: 048
  2. VITAMIN D [Concomitant]
     Active Substance: CHOLECALCIFEROL
     Indication: VITAMIN D DEFICIENCY
     Route: 065
     Dates: start: 20150615

REACTIONS (15)
  - Blood glucose increased [Unknown]
  - Fall [Unknown]
  - Lymphocyte count increased [Unknown]
  - Feeling abnormal [Recovered/Resolved]
  - Lymphopenia [Unknown]
  - Headache [Recovered/Resolved]
  - Dizziness [Unknown]
  - Depression [Recovered/Resolved]
  - Headache [Unknown]
  - Haematocrit decreased [Unknown]
  - Leukopenia [Recovered/Resolved]
  - Haemoglobin decreased [Unknown]
  - Paraesthesia [Unknown]
  - Blood triglycerides increased [Recovered/Resolved]
  - Somnolence [Unknown]

NARRATIVE: CASE EVENT DATE: 20141215
